FAERS Safety Report 5405457-5 (Version None)
Quarter: 2007Q3

REPORT INFORMATION
  Report Type: 
  Country: None (occurrence: None)
  Receive Date: 20070803
  Receipt Date: 20070724
  Transmission Date: 20080115
  Serious: Yes (Death)
  Sender: FDA-Public Use
  Company Number: GB-PFIZER INC-2007062759

PATIENT
  Age: 55 Year
  Sex: Male

DRUGS (1)
  1. VARENICLINE TABLETS [Suspect]
     Route: 048

REACTIONS (3)
  - ARTERIOSCLEROSIS CORONARY ARTERY [None]
  - MYOCARDIAL INFARCTION [None]
  - SUDDEN DEATH [None]
